FAERS Safety Report 19455064 (Version 6)
Quarter: 2021Q4

REPORT INFORMATION
  Report Type: Report from Study
  Country: BE (occurrence: BE)
  Receive Date: 20210623
  Receipt Date: 20211229
  Transmission Date: 20220303
  Serious: Yes (Hospitalization, Other)
  Sender: FDA-Public Use
  Company Number: BE-ROCHE-2838688

PATIENT
  Age: 77 Year
  Sex: Male
  Weight: 104.4 kg

DRUGS (43)
  1. CARBOPLATIN [Suspect]
     Active Substance: CARBOPLATIN
     Indication: Small cell lung cancer extensive stage
     Dosage: 675 MG
     Route: 065
     Dates: start: 20210503
  2. ATEZOLIZUMAB [Suspect]
     Active Substance: ATEZOLIZUMAB
     Indication: Small cell lung cancer extensive stage
     Dosage: 1200 MG
     Route: 041
     Dates: start: 20210503
  3. ETOPOSIDE [Suspect]
     Active Substance: ETOPOSIDE
     Indication: Small cell lung cancer extensive stage
     Dosage: 181 MG
     Route: 048
     Dates: start: 20210503
  4. FUROSEMIDE [Concomitant]
     Active Substance: FUROSEMIDE
     Dosage: UNK UNK, DAILY
     Dates: start: 2017
  5. HUMULINE [Concomitant]
     Dosage: UNK UNK, DAILY
     Dates: start: 20210426
  6. TAMSULOSIN [Concomitant]
     Active Substance: TAMSULOSIN
     Dosage: UNK, 1X/DAY
     Dates: start: 2018
  7. UREUM [Concomitant]
     Dosage: UNK, DAILY
     Dates: start: 202003
  8. MOVICOL [Concomitant]
     Active Substance: POLYETHYLENE GLYCOL 3350\POTASSIUM CHLORIDE\SODIUM BICARBONATE\SODIUM CHLORIDE
     Dosage: UNK, AS NEEDED
     Dates: start: 20210430, end: 20210505
  9. MINERAL OIL [Concomitant]
     Active Substance: MINERAL OIL
     Dosage: UNK, AS NEEDED
     Dates: start: 2006
  10. BETAHISTINE [Concomitant]
     Active Substance: BETAHISTINE
     Dosage: UNK, DAILY
     Dates: start: 2016
  11. PANTOPRAZOLE [Concomitant]
     Active Substance: PANTOPRAZOLE
     Indication: Prophylaxis
     Dosage: UNK UNK, 1X/DAY
     Dates: start: 2001
  12. TACROLIMUS [Concomitant]
     Active Substance: TACROLIMUS
     Dosage: UNK, 2X/DAY
     Dates: start: 20210205
  13. COPERINDO [Concomitant]
     Dosage: UNK UNK, 1X/DAY
     Dates: start: 2006
  14. ENOXAPARIN SODIUM [Concomitant]
     Active Substance: ENOXAPARIN SODIUM
     Indication: Prophylaxis
     Dosage: UNK, DAILY
     Dates: start: 20210428, end: 20210509
  15. SODIUM PHOSPHATE, DIBASIC\SODIUM PHOSPHATE, MONOBASIC, ANHYDROUS [Concomitant]
     Active Substance: SODIUM PHOSPHATE, DIBASIC\SODIUM PHOSPHATE, MONOBASIC, ANHYDROUS
     Dosage: UNK UNK, SINGLE
     Dates: start: 20210504, end: 20210504
  16. ISOSORBIDE DINITRATE [Concomitant]
     Active Substance: ISOSORBIDE DINITRATE
     Indication: Hypokalaemia
     Dosage: UNK UNK, SINGLE
     Dates: start: 20210504, end: 20210504
  17. BACLOFEN [Concomitant]
     Active Substance: BACLOFEN
     Dosage: UNK, DAILY
     Dates: start: 20070110
  18. ACETAMINOPHEN [Concomitant]
     Active Substance: ACETAMINOPHEN
     Dosage: UNK, AS NEEDED
     Dates: start: 20210503, end: 20210505
  19. IPRATROPIUM BROMIDE [Concomitant]
     Active Substance: IPRATROPIUM BROMIDE
     Indication: Lung neoplasm malignant
     Dosage: UNK, DAILY
     Dates: start: 20210426, end: 20210512
  20. LIPEGFILGRASTIM [Concomitant]
     Active Substance: LIPEGFILGRASTIM
     Dosage: UNK UNK, DAILY  (EVERY MORNING)
     Dates: start: 20210506, end: 20210715
  21. ALLOPURINOL [Concomitant]
     Active Substance: ALLOPURINOL
     Dosage: UNK UNK, 1X/DAY
     Dates: start: 2001
  22. ALIZAPRIDE [Concomitant]
     Active Substance: ALIZAPRIDE
     Indication: Prophylaxis
     Dosage: UNK, MONTHLY
     Dates: start: 20210504
  23. ALIZAPRIDE [Concomitant]
     Active Substance: ALIZAPRIDE
     Dosage: UNK, AS NEEDED
     Dates: start: 20210507, end: 20210507
  24. METFORMIN HYDROCHLORIDE [Concomitant]
     Active Substance: METFORMIN HYDROCHLORIDE
     Dosage: UNK UNK, 2X/DAY
     Dates: start: 2016
  25. ASPIRIN [Concomitant]
     Active Substance: ASPIRIN
     Dosage: UNK UNK, DAILY
     Dates: start: 2001
  26. CETIRIZINE [Concomitant]
     Active Substance: CETIRIZINE HYDROCHLORIDE
     Dosage: UNK UNK, AS NEEDED
     Dates: start: 202003
  27. PREGABALIN [Concomitant]
     Active Substance: PREGABALIN
     Dosage: UNK UNK, 2X/DAY
     Dates: start: 2017
  28. MAGNESIUM [Concomitant]
     Active Substance: MAGNESIUM
     Indication: Prophylaxis
     Dosage: UNK, DAILY
     Dates: start: 202101
  29. METHYLPREDNISOLONE [Concomitant]
     Active Substance: METHYLPREDNISOLONE
     Indication: Prophylaxis
     Dosage: UNK UNK, MONTHLY
     Dates: start: 20210503
  30. AKYNZEO [Concomitant]
     Active Substance: NETUPITANT\PALONOSETRON HYDROCHLORIDE
     Indication: Prophylaxis
     Dosage: UNK UNK, MONTHLY
     Dates: start: 20210503
  31. FENTANYL [Concomitant]
     Active Substance: FENTANYL
  32. VANCOMYCIN [Concomitant]
     Active Substance: VANCOMYCIN
  33. IBUPROFEN [Concomitant]
     Active Substance: IBUPROFEN
  34. HYDROCORTISONE [Concomitant]
     Active Substance: HYDROCORTISONE
     Dosage: UNK, 2X/DAY
     Dates: start: 20210914, end: 20210923
  35. MICONAZOLE [Concomitant]
     Active Substance: MICONAZOLE
  36. PIPERACILLIN AND TAZOBACTAM [Concomitant]
     Active Substance: PIPERACILLIN SODIUM\TAZOBACTAM SODIUM
  37. HUMAN RED BLOOD CELL [Concomitant]
     Active Substance: HUMAN RED BLOOD CELL
  38. OXYCODONE [Concomitant]
     Active Substance: OXYCODONE
     Indication: Parenteral nutrition
     Dosage: UNK, DAILY
     Dates: start: 20210507
  39. SOLU-CORTEF [Concomitant]
     Active Substance: HYDROCORTISONE SODIUM SUCCINATE
     Dosage: UNK, DAILY
     Dates: start: 20210907, end: 20210913
  40. MEROPENEM [Concomitant]
     Active Substance: MEROPENEM
     Dosage: UNK, 3X/DAY
     Dates: start: 20210907, end: 20210918
  41. ULTRA-K [Concomitant]
     Dosage: UNK UNK, 3X/DAY
     Dates: start: 20210913, end: 20210915
  42. ESCITALOPRAM [Concomitant]
     Active Substance: ESCITALOPRAM OXALATE
     Dosage: UNK, DAILY
     Dates: start: 20210923
  43. INSULIN HUMAN [Concomitant]
     Active Substance: INSULIN HUMAN
     Dosage: UNK, DAILY
     Dates: start: 20210913

REACTIONS (5)
  - Hypokalaemia [Recovering/Resolving]
  - Pancytopenia [Recovering/Resolving]
  - Liver function test increased [Recovering/Resolving]
  - Haematoma [Recovering/Resolving]
  - Bone contusion [Recovering/Resolving]

NARRATIVE: CASE EVENT DATE: 20210510
